FAERS Safety Report 14475803 (Version 1)
Quarter: 2018Q1

REPORT INFORMATION
  Report Type: Spontaneous
  Country: US (occurrence: US)
  Receive Date: 20180201
  Receipt Date: 20180201
  Transmission Date: 20180509
  Serious: Yes (Other)
  Sender: FDA-Public Use
  Company Number: None

PATIENT
  Age: 29 Year
  Sex: Female
  Weight: 88.45 kg

DRUGS (9)
  1. AUBAGIO [Concomitant]
     Active Substance: TERIFLUNOMIDE
  2. DEPO-PROVERA CI [Concomitant]
  3. OMEGA-3 FISH [Concomitant]
  4. VITAMIN [Concomitant]
     Active Substance: VITAMINS
  5. LAMOTRIGINE, SUBSTITUTED FOR LAMICTAL [Suspect]
     Active Substance: LAMOTRIGINE
     Indication: AFFECTIVE DISORDER
     Dosage: 2 PILLS PF 25MG
     Route: 048
     Dates: start: 20171101, end: 20171127
  6. VITAMIN B COMPLEX [Concomitant]
     Active Substance: CYANOCOBALAMIN\DEXPANTHENOL\NIACINAMIDE\PYRIDOXINE HYDROCHLORIDE\RIBOFLAVIN 5^-PHOSPHATE SODIUM\THIAMINE HYDROCHLORIDE\VITAMIN B COMPLEX
  7. FLAXSEED [Concomitant]
     Active Substance: FLAX SEED
  8. WALKER SEAT [Concomitant]
     Active Substance: DEVICE
  9. SHOWER CHAIR [Concomitant]

REACTIONS (7)
  - Stevens-Johnson syndrome [None]
  - Rash pruritic [None]
  - Pyrexia [None]
  - Skin discolouration [None]
  - Dyspepsia [None]
  - Dry mouth [None]
  - Tongue blistering [None]

NARRATIVE: CASE EVENT DATE: 20171117
